FAERS Safety Report 5645094-0 (Version None)
Quarter: 2008Q1

REPORT INFORMATION
  Report Type: 
  Country: None (occurrence: None)
  Receive Date: 20080131
  Receipt Date: 20070906
  Transmission Date: 20080703
  Serious: No
  Sender: FDA-Public Use
  Company Number: 2007-US-000240

PATIENT
  Age: 4 Year
  Sex: Male
  Weight: 12.4 kg

DRUGS (3)
  1. INCRELEX [Suspect]
     Indication: INSULIN-LIKE GROWTH FACTOR DECREASED
     Dosage: 15 UT, BID, SUBCUTANEOUS ; 15 UT, BID, SUBCUTANEOUS
     Route: 058
     Dates: start: 20070301
  2. INCRELEX [Suspect]
     Indication: INSULIN-LIKE GROWTH FACTOR DECREASED
     Dosage: 15 UT, BID, SUBCUTANEOUS ; 15 UT, BID, SUBCUTANEOUS
     Route: 058
     Dates: start: 20070808
  3. MIRALAX [Concomitant]

REACTIONS (3)
  - DECREASED APPETITE [None]
  - SNORING [None]
  - TONSILLAR HYPERTROPHY [None]
